FAERS Safety Report 4852542-2 (Version None)
Quarter: 2005Q4

REPORT INFORMATION
  Report Type: 
  Country: None (occurrence: None)
  Receive Date: 20051213
  Receipt Date: 20051130
  Transmission Date: 20060501
  Serious: Yes (Hospitalization)
  Sender: FDA-Public Use
  Company Number: PHBS2005PE17803

PATIENT
  Sex: Female

DRUGS (2)
  1. TRILEPTAL [Suspect]
     Indication: NEURALGIA
     Dosage: 150 MG/D
     Route: 048
     Dates: end: 20051101
  2. TEGRETOL [Suspect]
     Indication: NEURALGIA
     Dosage: 400 MG/DAY
     Route: 048
     Dates: end: 20051101

REACTIONS (5)
  - CONFUSIONAL STATE [None]
  - DRUG INTERACTION [None]
  - HYPERSOMNIA [None]
  - HYPONATRAEMIA [None]
  - INAPPROPRIATE ANTIDIURETIC HORMONE SECRETION [None]
